FAERS Safety Report 23130665 (Version 1)
Quarter: 2023Q4

REPORT INFORMATION
  Report Type: Spontaneous
  Country: US (occurrence: US)
  Receive Date: 20231031
  Receipt Date: 20231031
  Transmission Date: 20240109
  Serious: Yes (Hospitalization)
  Sender: FDA-Public Use
  Company Number: US-VISTAPHARM-2023-US-036092

PATIENT
  Sex: Female

DRUGS (1)
  1. SUCRALFATE ORAL SUSPENSION [Suspect]
     Active Substance: SUCRALFATE
     Indication: Product used for unknown indication
     Dosage: 10ML TWICE PER DAY
     Route: 048
     Dates: start: 202304

REACTIONS (2)
  - Back pain [Unknown]
  - Kidney infection [Unknown]

NARRATIVE: CASE EVENT DATE: 20230911
